FAERS Safety Report 6828903-9 (Version None)
Quarter: 2010Q3

REPORT INFORMATION
  Report Type: 
  Country: None (occurrence: None)
  Receive Date: 20100709
  Receipt Date: 20070516
  Transmission Date: 20110219
  Serious: No
  Sender: FDA-Public Use
  Company Number: US-PFIZER INC-2007015139

PATIENT

DRUGS (1)
  1. CHANTIX [Suspect]
     Indication: SMOKING CESSATION THERAPY
     Dates: start: 20070111

REACTIONS (6)
  - DRUG INEFFECTIVE [None]
  - FOOD INTOLERANCE [None]
  - MALAISE [None]
  - NAUSEA [None]
  - NICOTINE DEPENDENCE [None]
  - VOMITING [None]
